FAERS Safety Report 7975018-2 (Version None)
Quarter: 2011Q4

REPORT INFORMATION
  Report Type: 
  Country: None (occurrence: None)
  Receive Date: 20111213
  Receipt Date: 20111024
  Transmission Date: 20120403
  Serious: No
  Sender: FDA-Public Use
  Company Number: US-AMGEN-USASP2011055103

PATIENT
  Age: 55 Year
  Sex: Female

DRUGS (1)
  1. ENBREL [Suspect]
     Indication: RHEUMATOID ARTHRITIS
     Dosage: 50 MG, QWK
     Dates: start: 20100801

REACTIONS (8)
  - MENISCUS LESION [None]
  - PAIN IN EXTREMITY [None]
  - WRONG TECHNIQUE IN DRUG USAGE PROCESS [None]
  - MOBILITY DECREASED [None]
  - ARTHRALGIA [None]
  - INJECTION SITE PAIN [None]
  - OEDEMA PERIPHERAL [None]
  - JOINT EFFUSION [None]
